FAERS Safety Report 7582725-2 (Version None)
Quarter: 2011Q2

REPORT INFORMATION
  Report Type: 
  Country: None (occurrence: None)
  Receive Date: 20110623
  Receipt Date: 20110615
  Transmission Date: 20111010
  Serious: Yes (Death)
  Sender: FDA-Public Use
  Company Number: MPS1-1000502

PATIENT
  Age: 17 Month
  Sex: Male
  Weight: 10 kg

DRUGS (1)
  1. ALDURAZYME [Suspect]
     Indication: MUCOPOLYSACCHARIDOSIS I
     Dosage: 100 U/KG,  INTRAVENOUS
     Route: 042
     Dates: start: 20100914, end: 20110401

REACTIONS (2)
  - TRANSPLANT [None]
  - CARDIOPULMONARY FAILURE [None]
